FAERS Safety Report 4312191-1 (Version None)
Quarter: 2004Q1

REPORT INFORMATION
  Report Type: 
  Country: None (occurrence: None)
  Receive Date: 20040303
  Receipt Date: 20040223
  Transmission Date: 20041129
  Serious: Yes (Hospitalization, Other)
  Sender: FDA-Public Use
  Company Number: 2004006598

PATIENT
  Age: 50 Year
  Sex: Female

DRUGS (4)
  1. ZITHROMAX [Suspect]
     Indication: PURULENCE
     Dosage: 500 MG (DAILY), ORAL
     Route: 048
     Dates: start: 20040122, end: 20040123
  2. CEFDINIR (CEFDINIR) [Concomitant]
  3. PRONASE (PRONASE) [Concomitant]
  4. DICLOFENAC SODIUM [Concomitant]

REACTIONS (4)
  - BLISTER [None]
  - DRUG HYPERSENSITIVITY [None]
  - URTICARIA [None]
  - VISUAL ACUITY REDUCED [None]
